FAERS Safety Report 25120470 (Version 2)
Quarter: 2025Q2

REPORT INFORMATION
  Report Type: Spontaneous
  Country: PT (occurrence: PT)
  Receive Date: 20250325
  Receipt Date: 20250404
  Transmission Date: 20250716
  Serious: Yes (Other)
  Sender: TEVA
  Company Number: PT-TEVA-VS-3312360

PATIENT
  Age: 20 Year
  Sex: Male

DRUGS (1)
  1. VORICONAZOLE [Suspect]
     Active Substance: VORICONAZOLE
     Indication: Bronchopulmonary aspergillosis
     Route: 065

REACTIONS (1)
  - Chronic cutaneous lupus erythematosus [Recovering/Resolving]
